FAERS Safety Report 13658022 (Version 1)
Quarter: 2017Q2

REPORT INFORMATION
  Report Type: Spontaneous
  Country: US (occurrence: US)
  Receive Date: 20170616
  Receipt Date: 20170616
  Transmission Date: 20170830
  Serious: Yes (Other)
  Sender: FDA-Public Use
  Company Number: US-ASTRAZENECA-2017SE61058

PATIENT
  Age: 58 Year
  Sex: Female
  Weight: 53.1 kg

DRUGS (3)
  1. IBRANCE [Suspect]
     Active Substance: PALBOCICLIB
     Dosage: 1 CAPSULE DAILY BY MOUTH FOR 21 DAYS ON, 7 DAYS OFF
     Route: 048
  2. FASLODEX [Suspect]
     Active Substance: FULVESTRANT
     Route: 030
  3. IBRANCE [Suspect]
     Active Substance: PALBOCICLIB
     Route: 048

REACTIONS (16)
  - Decreased appetite [Unknown]
  - Neutropenia [Unknown]
  - Fall [Unknown]
  - Nausea [Unknown]
  - Abdominal discomfort [Unknown]
  - Flushing [Unknown]
  - Metastasis [Unknown]
  - Anxiety [Unknown]
  - Parosmia [Unknown]
  - Urinary tract infection [Unknown]
  - Insomnia [Unknown]
  - Fatigue [Unknown]
  - Laceration [Unknown]
  - Hot flush [Unknown]
  - Hypersomnia [Unknown]
  - Oral herpes [Unknown]
